FAERS Safety Report 6495257-X (Version None)
Quarter: 2009Q4

REPORT INFORMATION
  Report Type: 
  Country: None (occurrence: None)
  Receive Date: 20091214
  Receipt Date: 20091208
  Transmission Date: 20100525
  Serious: Yes (Other)
  Sender: FDA-Public Use
  Company Number: JP-PFIZER INC-2009308493

PATIENT

DRUGS (1)
  1. REVATIO [Suspect]
     Dosage: 60 MG, 1X/DAY
     Route: 048

REACTIONS (1)
  - ATRIAL FIBRILLATION [None]
